FAERS Safety Report 18184686 (Version 1)
Quarter: 2020Q3

REPORT INFORMATION
  Report Type: Spontaneous
  Country: US (occurrence: US)
  Receive Date: 20200824
  Receipt Date: 20200824
  Transmission Date: 20201103
  Serious: Yes (Life-Threatening, Hospitalization, Other)
  Sender: FDA-Public Use
  Company Number: US-LUPIN PHARMACEUTICALS INC.-2020-05005

PATIENT
  Age: 29 Year
  Sex: Male

DRUGS (1)
  1. DIVALPROEX [Suspect]
     Active Substance: DIVALPROEX SODIUM
     Indication: PRODUCT USED FOR UNKNOWN INDICATION
     Dosage: UNK
     Route: 048

REACTIONS (9)
  - Coma [Recovered/Resolved]
  - Toxicity to various agents [Recovered/Resolved]
  - Agitation [Recovered/Resolved]
  - Ammonia increased [Recovered/Resolved]
  - Hypernatraemia [Recovered/Resolved]
  - Blood lactic acid increased [Recovered/Resolved]
  - Overdose [Unknown]
  - Blood pressure decreased [Recovered/Resolved]
  - Metabolic acidosis [Recovered/Resolved]
